FAERS Safety Report 16027304 (Version 2)
Quarter: 2019Q2

REPORT INFORMATION
  Report Type: Spontaneous
  Country: HR (occurrence: HR)
  Receive Date: 20190303
  Receipt Date: 20190610
  Transmission Date: 20190711
  Serious: Yes (Hospitalization)
  Sender: FDA-Public Use
  Company Number: HR-SUN PHARMACEUTICAL INDUSTRIES LTD-2019R1-200772

PATIENT
  Age: 34 Year
  Sex: Male

DRUGS (2)
  1. METHOTREXATE. [Suspect]
     Active Substance: METHOTREXATE
     Indication: ANKYLOSING SPONDYLITIS
     Dosage: 10 MILLIGRAM, WEEKLY, LAST 2 YEARS
     Route: 065
  2. ADALIMUMAB [Suspect]
     Active Substance: ADALIMUMAB
     Indication: ANKYLOSING SPONDYLITIS
     Dosage: 40 MILLIGRAM, 2/WEEK
     Route: 058

REACTIONS (2)
  - Pneumonia [Recovered/Resolved]
  - Varicella [Recovered/Resolved]
